FAERS Safety Report 24084248 (Version 1)
Quarter: 2024Q3

REPORT INFORMATION
  Report Type: Spontaneous
  Country: US (occurrence: None)
  Receive Date: 20240711
  Receipt Date: 20240711
  Transmission Date: 20241017
  Serious: Yes (Hospitalization, Other)
  Sender: Public
  Company Number: None

PATIENT
  Age: 54 Year
  Sex: Female
  Weight: 89.55 kg

DRUGS (7)
  1. OXALIPLATIN [Suspect]
     Active Substance: OXALIPLATIN
     Indication: Small intestine carcinoma
     Dosage: OTHER FREQUENCY : EVERY 14 DAYS;?
     Route: 040
     Dates: start: 20240515, end: 20240710
  2. OXALIPLATIN [Suspect]
     Active Substance: OXALIPLATIN
     Indication: Adenocarcinoma
  3. leucovorin 700 mg [Concomitant]
     Dates: start: 20240515, end: 20240710
  4. dexamethsone 12 mg [Concomitant]
     Dates: start: 20240515, end: 20240710
  5. palonsetron 250 mg [Concomitant]
     Dates: start: 20240515, end: 20240710
  6. Fluorouracil IV push 600 mg [Concomitant]
     Dates: start: 20240515, end: 20240626
  7. Fluorouracil pump 3000 mg over 48 hours [Concomitant]
     Dates: start: 20240515, end: 20240626

REACTIONS (5)
  - Cough [None]
  - Posturing [None]
  - Seizure like phenomena [None]
  - Somnolence [None]
  - Blood pressure increased [None]

NARRATIVE: CASE EVENT DATE: 20240710
